FAERS Safety Report 25157674 (Version 1)
Quarter: 2025Q2

REPORT INFORMATION
  Report Type: Report from Study
  Country: CN (occurrence: CN)
  Receive Date: 20250403
  Receipt Date: 20250403
  Transmission Date: 20250716
  Serious: Yes (Hospitalization)
  Sender: ALEXION PHARMACEUTICALS
  Company Number: CN-ASTRAZENECA-202503GLO026389CN

PATIENT
  Weight: 44 kg

DRUGS (2)
  1. ECULIZUMAB [Suspect]
     Active Substance: ECULIZUMAB
     Indication: Atypical haemolytic uraemic syndrome
  2. ECULIZUMAB [Suspect]
     Active Substance: ECULIZUMAB

REACTIONS (1)
  - Tonsillitis [Recovered/Resolved]
